FAERS Safety Report 18359874 (Version 5)
Quarter: 2020Q4

REPORT INFORMATION
  Report Type: Spontaneous
  Country: US (occurrence: US)
  Receive Date: 20201008
  Receipt Date: 20201116
  Transmission Date: 20210114
  Serious: Yes (Death, Hospitalization, Other)
  Sender: FDA-Public Use
  Company Number: US-PFIZER INC-2020385708

PATIENT
  Age: 72 Year
  Sex: Female

DRUGS (3)
  1. IBRANCE [Suspect]
     Active Substance: PALBOCICLIB
     Dosage: 125 MG, UNK
     Dates: start: 20190620, end: 20200925
  2. IBRANCE [Suspect]
     Active Substance: PALBOCICLIB
     Indication: BREAST CANCER FEMALE
     Dosage: 125 MG, CYCLIC (1 C PO QDAY X 21 DAYS, THEN 7 DAYS OFF)
     Route: 048
     Dates: start: 20170824, end: 20200918
  3. IBRANCE [Suspect]
     Active Substance: PALBOCICLIB
     Dosage: 125 MG, UNK
     Dates: start: 20190619, end: 20201001

REACTIONS (7)
  - Lung disorder [Unknown]
  - Chronic obstructive pulmonary disease [Unknown]
  - Pulmonary toxicity [Unknown]
  - Oedema peripheral [Unknown]
  - Cardiac failure congestive [Fatal]
  - Cerebrovascular accident [Unknown]
  - Cough [Unknown]

NARRATIVE: CASE EVENT DATE: 20200918
